FAERS Safety Report 6854908-8 (Version None)
Quarter: 2010Q3

REPORT INFORMATION
  Report Type: 
  Country: None (occurrence: None)
  Receive Date: 20100717
  Receipt Date: 20080221
  Transmission Date: 20110219
  Serious: No
  Sender: FDA-Public Use
  Company Number: US-PFIZER INC-2008004250

PATIENT
  Sex: Female

DRUGS (3)
  1. CHANTIX [Suspect]
     Indication: TOBACCO USER
     Dates: start: 20080101
  2. CYMBALTA [Concomitant]
     Dates: start: 20070801
  3. ALPRAZOLAM [Concomitant]
     Dates: start: 20070801

REACTIONS (2)
  - DYSGEUSIA [None]
  - METRORRHAGIA [None]
